FAERS Safety Report 17795924 (Version 1)
Quarter: 2020Q2

REPORT INFORMATION
  Report Type: Spontaneous
  Country: DK (occurrence: DK)
  Receive Date: 20200516
  Receipt Date: 20200516
  Transmission Date: 20200714
  Serious: Yes (Other)
  Sender: FDA-Public Use
  Company Number: DK-AMGEN-DNKSP2020076141

PATIENT
  Age: 62 Year
  Sex: Female

DRUGS (5)
  1. EPIRUBICIN HYDROCHLORIDE. [Suspect]
     Active Substance: EPIRUBICIN HYDROCHLORIDE
     Indication: APOCRINE BREAST CARCINOMA
     Dosage: 2 MILLIGRAM PER MILLILITRE
     Route: 042
     Dates: start: 20170804
  2. TRASTUZUMAB. [Suspect]
     Active Substance: TRASTUZUMAB
     Indication: APOCRINE BREAST CARCINOMA
     Dosage: 15 SERIES IN TOTAL
     Route: 065
  3. CYCLOPHOSPHAMIDE. [Suspect]
     Active Substance: CYCLOPHOSPHAMIDE
     Indication: APOCRINE BREAST CARCINOMA
     Dosage: UNK
     Route: 065
     Dates: start: 20170804
  4. PACLITAXEL. [Suspect]
     Active Substance: PACLITAXEL
     Indication: APOCRINE BREAST CARCINOMA
     Dosage: 6 MILLIGRAM PER MILLILITRE
     Route: 042
     Dates: start: 20171023
  5. SAVENE [Suspect]
     Active Substance: DEXRAZOXANE
     Indication: ADMINISTRATION SITE EXTRAVASATION
     Dosage: 20 MILLIGRAM PER MILLILITRE
     Route: 042
     Dates: start: 20170825

REACTIONS (13)
  - Nausea [Unknown]
  - Visual field defect [Unknown]
  - Neuropathy peripheral [Unknown]
  - Dyspnoea [Unknown]
  - Cold sweat [Unknown]
  - Nail disorder [Unknown]
  - Presyncope [Unknown]
  - Hot flush [Unknown]
  - Tinnitus [Unknown]
  - Headache [Unknown]
  - Visual impairment [Unknown]
  - Mental impairment [Unknown]
  - Haematuria [Unknown]

NARRATIVE: CASE EVENT DATE: 2018
